FAERS Safety Report 16643550 (Version 1)
Quarter: 2019Q3

REPORT INFORMATION
  Report Type: Spontaneous
  Country: US (occurrence: US)
  Receive Date: 20190729
  Receipt Date: 20190729
  Transmission Date: 20191004
  Serious: No
  Sender: FDA-Public Use
  Company Number: US-PRINSTON PHARMACEUTICAL INC.-2019PRN00220

PATIENT
  Sex: Female
  Weight: 63.95 kg

DRUGS (2)
  1. MAGNESIUM [Concomitant]
     Active Substance: MAGNESIUM
  2. CLONAZEPAM. [Suspect]
     Active Substance: CLONAZEPAM
     Indication: SLEEP DISORDER
     Dosage: 1 TO 3 TTABLES A DAY AS NEEDED
     Route: 048
     Dates: start: 2017, end: 2017

REACTIONS (4)
  - Metabolic disorder [Recovered/Resolved]
  - Off label use [Recovered/Resolved]
  - Product substitution issue [Recovered/Resolved]
  - Abdominal discomfort [Recovered/Resolved]

NARRATIVE: CASE EVENT DATE: 2017
